FAERS Safety Report 20481789 (Version 2)
Quarter: 2022Q1

REPORT INFORMATION
  Report Type: Spontaneous
  Country: US (occurrence: US)
  Receive Date: 20220216
  Receipt Date: 20220307
  Transmission Date: 20220424
  Serious: Yes (Other)
  Sender: FDA-Public Use
  Company Number: US-ALLERGAN-2205456US

PATIENT
  Sex: Female

DRUGS (3)
  1. KYBELLA [Suspect]
     Active Substance: DEOXYCHOLIC ACID
     Indication: Product used for unknown indication
     Dosage: ONE VIAL (^2 CC^S^), SINGLE
     Dates: start: 20220127, end: 20220127
  2. PROBIOTICS NOS [Concomitant]
     Active Substance: PROBIOTICS NOS
  3. ORACEA [DOXYCYCLINE] [Concomitant]
     Indication: Rosacea

REACTIONS (7)
  - Vascular occlusion [Recovered/Resolved]
  - Injection site pain [Recovered/Resolved]
  - Injection site swelling [Recovered/Resolved]
  - Injection site bruising [Recovered/Resolved]
  - Injection site erythema [Recovering/Resolving]
  - Incorrect route of product administration [Unknown]
  - Arterial injury [Unknown]

NARRATIVE: CASE EVENT DATE: 20220127
